FAERS Safety Report 5012835-5 (Version None)
Quarter: 2006Q2

REPORT INFORMATION
  Report Type: 
  Country: None (occurrence: None)
  Receive Date: 20060530
  Receipt Date: 20060413
  Transmission Date: 20061013
  Serious: Yes (Hospitalization)
  Sender: FDA-Public Use
  Company Number: US-BRISTOL-MYERS SQUIBB COMPANY-13345715

PATIENT
  Age: 78 Year
  Sex: Male
  Weight: 87 kg

DRUGS (16)
  1. ERBITUX [Suspect]
     Indication: TONGUE NEOPLASM MALIGNANT STAGE UNSPECIFIED
     Route: 042
  2. ERBITUX [Suspect]
     Indication: METASTASES TO LUNG
     Route: 042
  3. METFORMIN HYDROCHLORIDE [Concomitant]
  4. ACTOS [Concomitant]
  5. REGULAR INSULIN [Concomitant]
  6. LIPITOR [Concomitant]
  7. SALAGEN [Concomitant]
  8. SENOKOT [Concomitant]
  9. DURAGESIC-100 [Concomitant]
  10. ZANTAC [Concomitant]
  11. REGLAN [Concomitant]
     Route: 042
  12. COLACE [Concomitant]
  13. ASPIRIN [Concomitant]
  14. SOLU-MEDROL [Concomitant]
     Route: 042
  15. LIDODERM PATCH [Concomitant]
     Route: 061
  16. MORPHINE [Concomitant]
     Route: 042

REACTIONS (1)
  - PNEUMONITIS [None]
